FAERS Safety Report 15272421 (Version 1)
Quarter: 2018Q3

REPORT INFORMATION
  Report Type: Spontaneous
  Country: ES (occurrence: ES)
  Receive Date: 20180813
  Receipt Date: 20180813
  Transmission Date: 20181010
  Serious: Yes (Hospitalization, Other)
  Sender: FDA-Public Use
  Company Number: ES-PFIZER INC-2018317728

PATIENT
  Age: 58 Year
  Sex: Male

DRUGS (2)
  1. ACFOL [Concomitant]
     Active Substance: FOLIC ACID
     Dosage: 5 UNK, UNK ( DELIVERANCE)
     Route: 048
     Dates: start: 20140601, end: 20171123
  2. METHOTREXATE SODIUM. [Suspect]
     Active Substance: METHOTREXATE SODIUM
     Indication: RHEUMATOID ARTHRITIS
     Dosage: 20 MG, WEEKLY
     Route: 048
     Dates: start: 20140601

REACTIONS (1)
  - Chromophobe renal cell carcinoma [Recovered/Resolved]

NARRATIVE: CASE EVENT DATE: 20171123
